FAERS Safety Report 5656703-4 (Version None)
Quarter: 2008Q1

REPORT INFORMATION
  Report Type: 
  Country: None (occurrence: None)
  Receive Date: 20080306
  Receipt Date: 20080306
  Transmission Date: 20080703
  Serious: Yes (Life-Threatening)
  Sender: FDA-Public Use
  Company Number: None

PATIENT
  Age: 72 Year
  Sex: Female
  Weight: 68.0396 kg

DRUGS (1)
  1. ASTHALIN  100 MG   CIPLA [Suspect]
     Indication: ASTHMA
     Dosage: 100PG/DOSE WHEN NEEDED INHAL
     Route: 055
     Dates: start: 20070905, end: 20070906

REACTIONS (1)
  - DRUG INEFFECTIVE [None]
